FAERS Safety Report 6206276-2 (Version None)
Quarter: 2009Q2

REPORT INFORMATION
  Report Type: 
  Country: None (occurrence: None)
  Receive Date: 20090528
  Receipt Date: 20090521
  Transmission Date: 20091009
  Serious: Yes (Other)
  Sender: FDA-Public Use
  Company Number: US-ROCHE-611864

PATIENT
  Sex: Female
  Weight: 52.6 kg

DRUGS (1)
  1. BONIVA [Suspect]
     Indication: OSTEOPOROSIS
     Dosage: DOSE REPORTED AS: 150 (NO UNITS)
     Route: 048
     Dates: start: 20080922, end: 20090201

REACTIONS (2)
  - PAIN [None]
  - SARCOMA [None]
